FAERS Safety Report 5339059-6 (Version None)
Quarter: 2007Q2

REPORT INFORMATION
  Report Type: 
  Country: None (occurrence: None)
  Receive Date: 20070330
  Receipt Date: 20070117
  Transmission Date: 20071010
  Serious: Yes (Hospitalization)
  Sender: FDA-Public Use
  Company Number: 2007UW00835

PATIENT
  Age: 93 Year
  Sex: Female

DRUGS (6)
  1. ZESTRIL [Suspect]
     Indication: HYPERTENSION
     Dates: end: 20061201
  2. LEXAPRO [Suspect]
     Indication: ANXIETY
     Dosage: 5 MG QD PO
     Route: 048
     Dates: start: 20061122, end: 20061201
  3. LEXAPRO [Suspect]
     Indication: DEPRESSION
     Dosage: 5 MG QD PO
     Route: 048
     Dates: start: 20061122, end: 20061201
  4. LEXAPRO [Suspect]
     Indication: ANXIETY
     Dosage: 5 MG QD PO
     Route: 048
     Dates: start: 20061201
  5. LEXAPRO [Suspect]
     Indication: DEPRESSION
     Dosage: 5 MG QD PO
     Route: 048
     Dates: start: 20061201
  6. ANTIBIOTIC [Concomitant]

REACTIONS (1)
  - HYPERSENSITIVITY [None]
